FAERS Safety Report 19350231 (Version 2)
Quarter: 2021Q3

REPORT INFORMATION
  Report Type: Report from Study
  Country: CA (occurrence: CA)
  Receive Date: 20210531
  Receipt Date: 20210702
  Transmission Date: 20211014
  Serious: Yes (Other)
  Sender: FDA-Public Use
  Company Number: CA-JNJFOC-20210504824

PATIENT
  Age: 51 Year
  Sex: Female
  Weight: 111.3 kg

DRUGS (1)
  1. REMICADE [Suspect]
     Active Substance: INFLIXIMAB
     Indication: CROHN^S DISEASE
     Route: 042
     Dates: start: 20100817

REACTIONS (2)
  - Rosacea [Recovering/Resolving]
  - Breast conserving surgery [Recovered/Resolved]

NARRATIVE: CASE EVENT DATE: 20210504
